FAERS Safety Report 4661147-8 (Version None)
Quarter: 2005Q2

REPORT INFORMATION
  Report Type: 
  Country: None (occurrence: None)
  Receive Date: 20050427
  Receipt Date: 20050223
  Transmission Date: 20051028
  Serious: Yes (Other)
  Sender: FDA-Public Use
  Company Number: 212098

PATIENT
  Age: 59 Year
  Sex: Male
  Weight: 148.8 kg

DRUGS (17)
  1. XOLAIR [Suspect]
     Indication: ASTHMA
     Dosage: 300 MG, Q2W, UNK
     Dates: start: 20031201
  2. SINGULAIR [Concomitant]
  3. ADVAIR (SALMETEROL XINAFOATE, FLUTICASONE PROPIONATE) [Concomitant]
  4. FLONASE [Concomitant]
  5. PROVENTIL (ALBUTERAL SULFATE, ALBUTEROL) [Concomitant]
  6. METFORMIN HCL [Concomitant]
  7. GLYBURIDE [Concomitant]
  8. AVANDIA [Concomitant]
  9. LIPITOR [Concomitant]
  10. ACCOLATE [Concomitant]
  11. PREVACID [Concomitant]
  12. ACCUPRIL [Concomitant]
  13. DICLOFENAC SODIUM [Concomitant]
  14. ALLEGRA [Concomitant]
  15. PLETAL [Concomitant]
  16. SEMPREX (ACRIVASTINE) [Concomitant]
  17. PULMICORT NEBULIZER (BUDESONIDE) [Concomitant]

REACTIONS (1)
  - PROSTATE CANCER RECURRENT [None]
